FAERS Safety Report 8495495-0 (Version None)
Quarter: 2012Q3

REPORT INFORMATION
  Report Type: 
  Country: None (occurrence: None)
  Receive Date: 20120709
  Receipt Date: 20120627
  Transmission Date: 20120928
  Serious: Yes (Hospitalization)
  Sender: FDA-Public Use
  Company Number: US-ACTELION-A-NJ2012-64989

PATIENT

DRUGS (3)
  1. ASPIRIN [Concomitant]
  2. PENICILLIN [Suspect]
  3. TRACLEER [Suspect]
     Indication: PULMONARY ARTERIAL HYPERTENSION
     Dosage: UNK
     Route: 048

REACTIONS (2)
  - TRANSFUSION [None]
  - GASTRIC ULCER HAEMORRHAGE [None]
